FAERS Safety Report 21182907 (Version 10)
Quarter: 2023Q2

REPORT INFORMATION
  Report Type: Report from Study
  Country: US (occurrence: US)
  Receive Date: 20220808
  Receipt Date: 20230427
  Transmission Date: 20230722
  Serious: Yes (Other)
  Sender: FDA-Public Use
  Company Number: US-NOVARTISTESTPH-NVSC2022US177845

PATIENT
  Sex: Female
  Weight: 10.3 kg

DRUGS (2)
  1. ZOLGENSMA [Suspect]
     Active Substance: ONASEMNOGENE ABEPARVOVEC-XIOI
     Indication: Spinal muscular atrophy
     Dosage: 55 ML, ONCE/SINGLE
     Route: 042
     Dates: start: 20220802, end: 20220802
  2. PREDNISOLONE [Concomitant]
     Active Substance: PREDNISOLONE
     Indication: Product used for unknown indication
     Dosage: UNK (ONGOING)
     Route: 065
     Dates: start: 20220801

REACTIONS (5)
  - Troponin increased [Recovered/Resolved]
  - Liver function test increased [Recovering/Resolving]
  - Pyrexia [Recovered/Resolved]
  - Rhinorrhoea [Unknown]
  - Decreased appetite [Unknown]
